FAERS Safety Report 8805256 (Version 1)
Quarter: 2012Q4

REPORT INFORMATION
  Report Type: 
  Country: DE (occurrence: DE)
  Receive Date: 20120924
  Receipt Date: 20120924
  Transmission Date: 20130627
  Serious: Yes (Death, Other)
  Sender: FDA-Public Use
  Company Number: PHHY2012DE082019

PATIENT
  Age: 54 Year
  Sex: Male

DRUGS (6)
  1. TACROLIMUS [Suspect]
     Indication: LIVER TRANSPLANT
     Dosage: 8 mg, daily
  2. CYCLOPHOSPHAMIDE [Suspect]
     Indication: BURKITT^S LYMPHOMA STAGE IV
     Dosage: 750 mg, ONCE/SINGLE
  3. DOXORUBICIN [Suspect]
     Indication: BURKITT^S LYMPHOMA STAGE IV
     Dosage: 50 mg, ONCE/SINGLE
  4. VINCRISTINE [Suspect]
     Indication: BURKITT^S LYMPHOMA STAGE IV
     Dosage: 2 mg, ONCE/SINGLE
  5. PREDNISOLONE [Suspect]
     Indication: BURKITT^S LYMPHOMA STAGE IV
     Dosage: 200 mg, UNK
  6. METHOTREXATE [Suspect]
     Indication: MENINGEAL NEOPLASM
     Route: 037

REACTIONS (8)
  - Respiratory arrest [Fatal]
  - Burkitt^s lymphoma stage IV [Not Recovered/Not Resolved]
  - Meningeal neoplasm [Unknown]
  - Flank pain [Unknown]
  - Epstein-Barr virus infection [Unknown]
  - Pneumonia [Unknown]
  - Leukopenia [Unknown]
  - Disease progression [Unknown]
